FAERS Safety Report 11205627 (Version 1)
Quarter: 2015Q2

REPORT INFORMATION
  Report Type: Spontaneous
  Country: US (occurrence: None)
  Receive Date: 20150619
  Receipt Date: 20150619
  Transmission Date: 20150821
  Serious: Yes (Hospitalization)
  Sender: FDA-Public Use
  Company Number: None

PATIENT
  Age: 74 Year
  Sex: Male
  Weight: 152 kg

DRUGS (1)
  1. MORPHINE SULFATE 10MG/5ML VISTAPHARM [Suspect]
     Active Substance: MORPHINE SULFATE
     Indication: PALLIATIVE CARE
     Route: 048
     Dates: start: 20150609

REACTIONS (2)
  - Incorrect route of drug administration [None]
  - No adverse event [None]

NARRATIVE: CASE EVENT DATE: 20150618
